FAERS Safety Report 16007674 (Version 1)
Quarter: 2019Q1

REPORT INFORMATION
  Report Type: Spontaneous
  Country: US (occurrence: US)
  Receive Date: 20190226
  Receipt Date: 20190226
  Transmission Date: 20190418
  Serious: No
  Sender: FDA-Public Use
  Company Number: US-PERRIGO-18US003993

PATIENT
  Age: 57 Year
  Sex: Male
  Weight: 79.37 kg

DRUGS (6)
  1. GLIPIZIDE. [Concomitant]
     Active Substance: GLIPIZIDE
     Indication: TYPE 2 DIABETES MELLITUS
     Dosage: 5 MG
     Route: 048
     Dates: start: 2016
  2. NAPROXEN SODIUM. [Suspect]
     Active Substance: NAPROXEN SODIUM
     Dosage: 220 MG, SINGLE
     Route: 048
     Dates: start: 20180408, end: 20180408
  3. NAPROXEN SODIUM. [Suspect]
     Active Substance: NAPROXEN SODIUM
     Indication: PAIN IN EXTREMITY
     Dosage: 440 MG IN THE MORNING, 220 MG 12 HOURS LATER
     Route: 048
     Dates: start: 20180407, end: 20180407
  4. LISINOPRIL. [Concomitant]
     Active Substance: LISINOPRIL
     Indication: HYPERTENSION
     Dosage: 20 MG
     Route: 048
     Dates: start: 2016
  5. METFORMIN [Concomitant]
     Active Substance: METFORMIN HYDROCHLORIDE
     Indication: TYPE 2 DIABETES MELLITUS
     Dosage: 1000 MG
     Route: 048
     Dates: start: 2016
  6. CENTRUM SILVER                     /02363801/ [Concomitant]
     Active Substance: MINERALS\VITAMINS
     Indication: SUPPLEMENTATION THERAPY
     Dosage: UNK
     Route: 048

REACTIONS (4)
  - Expired product administered [Recovered/Resolved]
  - Lip swelling [Recovering/Resolving]
  - Swelling face [Recovering/Resolving]
  - Peripheral swelling [Recovered/Resolved]

NARRATIVE: CASE EVENT DATE: 20180407
